FAERS Safety Report 25724234 (Version 1)
Quarter: 2025Q3

REPORT INFORMATION
  Report Type: Spontaneous
  Country: EU (occurrence: EU)
  Receive Date: 20250826
  Receipt Date: 20250826
  Transmission Date: 20251020
  Serious: Yes (Death, Life-Threatening)
  Sender: ACCORD
  Company Number: None

PATIENT
  Age: 74 Year
  Sex: Male
  Weight: 68 kg

DRUGS (4)
  1. BENDAMUSTINE [Suspect]
     Active Substance: BENDAMUSTINE
     Indication: Follicular lymphoma
     Dates: start: 20250606, end: 20250607
  2. RITUXIMAB [Suspect]
     Active Substance: RITUXIMAB
     Indication: Follicular lymphoma
     Dates: start: 20250519, end: 20250519
  3. RITUXIMAB [Suspect]
     Active Substance: RITUXIMAB
     Indication: Follicular lymphoma
     Dates: start: 20250528, end: 20250528
  4. RITUXIMAB [Suspect]
     Active Substance: RITUXIMAB
     Indication: Follicular lymphoma
     Dates: start: 20250603, end: 20250603

REACTIONS (3)
  - Neutropenia [Fatal]
  - Thrombocytopenia [Unknown]
  - Infection [Fatal]

NARRATIVE: CASE EVENT DATE: 20250628
